FAERS Safety Report 25062448 (Version 1)
Quarter: 2025Q1

REPORT INFORMATION
  Report Type: Spontaneous
  Country: CN (occurrence: CN)
  Receive Date: 20250311
  Receipt Date: 20250311
  Transmission Date: 20250409
  Serious: Yes (Other)
  Sender: AMGEN
  Company Number: CN-AMGEN-CHNSP2025045667

PATIENT
  Age: 62 Year
  Sex: Male

DRUGS (2)
  1. XGEVA [Suspect]
     Active Substance: DENOSUMAB
     Indication: Hepatic cancer
     Route: 058
     Dates: start: 20250210, end: 20250210
  2. TORIPALIMAB [Suspect]
     Active Substance: TORIPALIMAB
     Indication: Hepatic cancer
     Route: 040
     Dates: start: 20250210, end: 20250210

REACTIONS (1)
  - White blood cell count decreased [Unknown]
